FAERS Safety Report 7291022-4 (Version None)
Quarter: 2011Q1

REPORT INFORMATION
  Report Type: 
  Country: None (occurrence: None)
  Receive Date: 20110214
  Receipt Date: 20110209
  Transmission Date: 20110831
  Serious: Yes (Death, Hospitalization, Other)
  Sender: FDA-Public Use
  Company Number: PHHY2011KR10189

PATIENT
  Age: 60 Year
  Sex: Male

DRUGS (4)
  1. LINEZOLID [Suspect]
     Indication: RELAPSING FEVER
     Dosage: 600 MG, BID
     Route: 042
  2. LINEZOLID [Suspect]
     Indication: ANTIBIOTIC RESISTANT STAPHYLOCOCCUS TEST POSITIVE
  3. VANCOMYCIN [Suspect]
     Indication: STAPHYLOCOCCAL INFECTION
  4. STEROIDS NOS [Concomitant]
     Indication: THROMBOCYTOPENIC PURPURA

REACTIONS (5)
  - STENOTROPHOMONAS INFECTION [None]
  - ENTEROCOCCAL INFECTION [None]
  - BACTERAEMIA [None]
  - STAPHYLOCOCCAL INFECTION [None]
  - SEPTIC SHOCK [None]
